FAERS Safety Report 18290222 (Version 1)
Quarter: 2020Q3

REPORT INFORMATION
  Report Type: Spontaneous
  Country: IT (occurrence: IT)
  Receive Date: 20200921
  Receipt Date: 20200921
  Transmission Date: 20201103
  Serious: Yes (Other)
  Sender: FDA-Public Use
  Company Number: IT-GALDERMA-IT2020041747

PATIENT
  Age: 41 Year
  Sex: Female

DRUGS (1)
  1. EFACTI [Suspect]
     Active Substance: IVERMECTIN
     Indication: DERMATITIS
     Dosage: 10 MG/G
     Route: 057
     Dates: start: 20200716, end: 20200801

REACTIONS (5)
  - Eyelid oedema [Unknown]
  - Hyperaemia [Unknown]
  - Product use in unapproved indication [Recovered/Resolved]
  - Incorrect route of product administration [Recovered/Resolved]
  - Erythema of eyelid [Unknown]

NARRATIVE: CASE EVENT DATE: 20200716
